FAERS Safety Report 19694062 (Version 1)
Quarter: 2021Q3

REPORT INFORMATION
  Report Type: Other
  Country: KR (occurrence: KR)
  Receive Date: 20210812
  Receipt Date: 20210812
  Transmission Date: 20211014
  Serious: Yes (Other)
  Sender: FDA-Public Use
  Company Number: KR-B.BRAUN MEDICAL INC.-2114951

PATIENT
  Age: 25 Year
  Sex: Male

DRUGS (1)
  1. HEPARIN SODIUM IN DEXTROSE [Suspect]
     Active Substance: HEPARIN SODIUM
     Indication: HAEMODIALYSIS

REACTIONS (1)
  - Vascular pseudoaneurysm [None]
